FAERS Safety Report 8561605 (Version 3)
Quarter: 2013Q1

REPORT INFORMATION
  Report Type: Spontaneous
  Country: US (occurrence: US)
  Receive Date: 20120515
  Receipt Date: 20130301
  Transmission Date: 20140127
  Serious: No
  Sender: FDA-Public Use
  Company Number: US-BIOGENIDEC-2012BI016351

PATIENT
  Sex: Female

DRUGS (3)
  1. TYSABRI [Suspect]
     Indication: MULTIPLE SCLEROSIS
     Route: 042
     Dates: start: 20120313, end: 20120313
  2. AMPYRA [Concomitant]
     Indication: PRODUCT USED FOR UNKNOWN INDICATION
     Route: 048
     Dates: start: 201008
  3. GILENYA [Concomitant]
     Indication: PRODUCT USED FOR UNKNOWN INDICATION
     Dates: start: 201112, end: 20120716

REACTIONS (6)
  - Fall [Recovered/Resolved]
  - Balance disorder [Recovered/Resolved]
  - Hallucination, visual [Recovered/Resolved]
  - Paraesthesia [Recovered/Resolved]
  - Hallucination, auditory [Recovered/Resolved]
  - Muscular weakness [Not Recovered/Not Resolved]
